FAERS Safety Report 8825542 (Version 1)
Quarter: 2012Q4

REPORT INFORMATION
  Report Type: Report from Study
  Country: US (occurrence: US)
  Receive Date: 20121004
  Receipt Date: 20121004
  Transmission Date: 20130627
  Serious: Yes (Death, Life-Threatening, Hospitalization, Disabling, Other)
  Sender: FDA-Public Use
  Company Number: US-JNJFOC-20110100023

PATIENT
  Age: 61 Year
  Sex: Female
  Weight: 131.4 kg

DRUGS (29)
  1. GOLIMUMAB [Suspect]
     Route: 058
  2. GOLIMUMAB [Suspect]
     Indication: SARCOIDOSIS
     Route: 058
     Dates: start: 20101208
  3. ASPIRIN [Concomitant]
  4. TYLENOL [Concomitant]
  5. ALDACTONE [Concomitant]
  6. PREDNISONE [Concomitant]
     Indication: SARCOIDOSIS
     Route: 048
  7. ADVAIR [Concomitant]
  8. INSULIN GLARGINE [Concomitant]
  9. XOPENEX [Concomitant]
  10. LOVASTATIN [Concomitant]
  11. METOLAZONE [Concomitant]
  12. PRILOSEC [Concomitant]
  13. SPIRIVA [Concomitant]
  14. VERAPAMIL [Concomitant]
  15. METOPROLOL [Concomitant]
  16. METHOTREXATE [Concomitant]
     Route: 048
  17. HYDROXYCHLOROQUINE [Concomitant]
     Route: 048
  18. COREG [Concomitant]
     Dates: start: 201012
  19. AZELASTINE [Concomitant]
  20. BUMEX [Concomitant]
  21. ZYRTEC [Concomitant]
  22. FOLIC ACID [Concomitant]
  23. LEFLUNOMIDE [Concomitant]
     Route: 048
  24. LOSARTAN [Concomitant]
  25. METFORMIN [Concomitant]
  26. LEXAPRO [Concomitant]
  27. XANAX [Concomitant]
  28. TRAMADOL [Concomitant]
  29. PULMICORT [Concomitant]

REACTIONS (4)
  - Sepsis [Fatal]
  - Pneumonia [Not Recovered/Not Resolved]
  - Mental status changes [Not Recovered/Not Resolved]
  - Dyspnoea [Not Recovered/Not Resolved]
